FAERS Safety Report 4650428-X (Version None)
Quarter: 2005Q2

REPORT INFORMATION
  Report Type: 
  Country: None (occurrence: None)
  Receive Date: 20050429
  Receipt Date: 20050422
  Transmission Date: 20051028
  Serious: Yes (Death, Hospitalization)
  Sender: FDA-Public Use
  Company Number: 2005054563

PATIENT
  Age: 83 Year
  Sex: Male

DRUGS (1)
  1. CARDURA XL [Suspect]
     Indication: BENIGN PROSTATIC HYPERPLASIA
     Dosage: 4 MG (4 MG, QD), ORAL
     Route: 048
     Dates: start: 20031101

REACTIONS (4)
  - FALL [None]
  - PANCREAS INFECTION [None]
  - TREATMENT NONCOMPLIANCE [None]
  - VOMITING [None]
